FAERS Safety Report 9607598 (Version 1)
Quarter: 2013Q4

REPORT INFORMATION
  Report Type: Spontaneous
  Country: GB (occurrence: None)
  Receive Date: 20131004
  Receipt Date: 20131004
  Transmission Date: 20140711
  Serious: Yes (Hospitalization)
  Sender: FDA-Public Use
  Company Number: COR_00021_2013

PATIENT
  Age: 62 Year
  Sex: Male

DRUGS (2)
  1. ETOPOSIDE (ETOPOSIDE) [Suspect]
     Indication: SMALL CELL LUNG CANCER EXTENSIVE STAGE
     Dosage: 200 MG/M2 DAY 1 INTRAVENOUS
     Route: 042
     Dates: start: 200512, end: 200512
  2. CARBOPLATIN (CARBOPLATIN) [Suspect]
     Indication: SMALL CELL LUNG CANCER EXTENSIVE STAGE
     Dosage: AUC 5 DAY INTRAVENOUS
     Route: 042
     Dates: start: 200512, end: 200512

REACTIONS (1)
  - Small intestinal obstruction [None]
